FAERS Safety Report 19036671 (Version 1)
Quarter: 2021Q1

REPORT INFORMATION
  Report Type: Spontaneous
  Country: US (occurrence: US)
  Receive Date: 20210320
  Receipt Date: 20210320
  Transmission Date: 20210420
  Serious: Yes (Life-Threatening)
  Sender: FDA-Public Use
  Company Number: None

PATIENT
  Age: 27 Year
  Sex: Male
  Weight: 111.2 kg

DRUGS (5)
  1. DESAMETHASONE [Concomitant]
     Active Substance: DEXAMETHASONE
     Dates: start: 20210108, end: 20210129
  2. HYDROCORTISONE 2.5% OINTMENT [Concomitant]
     Active Substance: HYDROCORTISONE
     Dates: start: 20190722
  3. DOXEPIN [Concomitant]
     Active Substance: DOXEPIN
     Dates: start: 20201217
  4. CLOBETASOL OINTMENT [Concomitant]
     Active Substance: CLOBETASOL
     Dates: start: 20190723
  5. DUPIXENT [Suspect]
     Active Substance: DUPILUMAB
     Indication: DERMATITIS ATOPIC
     Dosage: ?          OTHER FREQUENCY:ONCE (INITIATION);?
     Route: 058
     Dates: start: 20210129, end: 20210216

REACTIONS (1)
  - Hallucination, auditory [None]

NARRATIVE: CASE EVENT DATE: 20210216
